FAERS Safety Report 4429861-7 (Version None)
Quarter: 2004Q3

REPORT INFORMATION
  Report Type: 
  Country: None (occurrence: None)
  Receive Date: 20040820
  Receipt Date: 20040810
  Transmission Date: 20050211
  Serious: Yes (Death)
  Sender: FDA-Public Use
  Company Number: JP-JNJFOC-20040704582

PATIENT
  Sex: Male

DRUGS (13)
  1. FENTANYL CITRATE [Suspect]
     Route: 062
     Dates: start: 20030704, end: 20031105
  2. FENTANYL CITRATE [Suspect]
     Route: 062
     Dates: start: 20030704, end: 20031105
  3. FENTANYL CITRATE [Suspect]
     Route: 062
     Dates: start: 20030704, end: 20031105
  4. FENTANYL CITRATE [Suspect]
     Route: 062
     Dates: start: 20030704, end: 20031105
  5. FENTANYL CITRATE [Suspect]
     Indication: CANCER PAIN
     Route: 062
     Dates: start: 20030704, end: 20031105
  6. KADIAN [Concomitant]
     Indication: CANCER PAIN
     Route: 049
     Dates: start: 20030704, end: 20030704
  7. MORPHINE HYDROCHLORIDE [Concomitant]
     Indication: CANCER PAIN
     Dosage: 20-50 MG PER DAY
     Route: 054
  8. BUCLADESINE SODIUM [Concomitant]
     Route: 049
  9. ROPION [Concomitant]
     Indication: CANCER PAIN
     Route: 042
  10. HYDROXYZINE HCL [Concomitant]
     Route: 049
  11. HALOPERIDOL [Concomitant]
     Dates: start: 20040713, end: 20040713
  12. CATAPLASMATA [Concomitant]
     Indication: NECK PAIN
     Dates: start: 20040704, end: 20040718
  13. CATAPLASMATA [Concomitant]
     Dosage: 3 TO 14 AS NEEDED PER DAY
     Dates: start: 20040704, end: 20040718

REACTIONS (11)
  - BACK PAIN [None]
  - DUODENAL FISTULA [None]
  - DUODENAL PERFORATION [None]
  - DUODENAL ULCER PERFORATION [None]
  - ENTEROCUTANEOUS FISTULA [None]
  - EROSIVE DUODENITIS [None]
  - MALIGNANT NEOPLASM PROGRESSION [None]
  - METASTASES TO ABDOMINAL WALL [None]
  - PRODUCTIVE COUGH [None]
  - PURULENT DISCHARGE [None]
  - PYREXIA [None]
